FAERS Safety Report 8549830-5 (Version None)
Quarter: 2012Q3

REPORT INFORMATION
  Report Type: 
  Country: None (occurrence: None)
  Receive Date: 20120730
  Receipt Date: 20120713
  Transmission Date: 20120928
  Serious: No
  Sender: FDA-Public Use
  Company Number: US-ASTRAZENECA-2012SE49461

PATIENT
  Age: 65 Year
  Sex: Female

DRUGS (1)
  1. NEXIUM [Suspect]
     Route: 048

REACTIONS (5)
  - HELICOBACTER GASTRITIS [None]
  - ABDOMINAL DISCOMFORT [None]
  - VOMITING [None]
  - APHAGIA [None]
  - HYPERCHLORHYDRIA [None]
